FAERS Safety Report 13387365 (Version 2)
Quarter: 2017Q2

REPORT INFORMATION
  Report Type: Spontaneous
  Country: US (occurrence: US)
  Receive Date: 20170330
  Receipt Date: 20170427
  Transmission Date: 20170830
  Serious: Yes (Other)
  Sender: FDA-Public Use
  Company Number: US-ASTRAZENECA-2017SE31377

PATIENT
  Age: 866 Month
  Sex: Male
  Weight: 113.4 kg

DRUGS (16)
  1. INCRUSE ELLIPTA [Concomitant]
     Active Substance: UMECLIDINIUM BROMIDE
     Indication: CHRONIC OBSTRUCTIVE PULMONARY DISEASE
     Dosage: DAILY
     Route: 055
     Dates: start: 20170104
  2. SYMBICORT [Suspect]
     Active Substance: BUDESONIDE\FORMOTEROL FUMARATE DIHYDRATE
     Indication: CHRONIC OBSTRUCTIVE PULMONARY DISEASE
     Dosage: TWO INHALATIONS IN THE MORNING
     Route: 055
     Dates: end: 201703
  3. MUCINEX [Concomitant]
     Active Substance: GUAIFENESIN
     Indication: CHRONIC OBSTRUCTIVE PULMONARY DISEASE
  4. SYMBICORT [Suspect]
     Active Substance: BUDESONIDE\FORMOTEROL FUMARATE DIHYDRATE
     Indication: CHRONIC OBSTRUCTIVE PULMONARY DISEASE
     Dosage: 2 PUFFS, TWO INHALATIONS TWICE A DAY
     Route: 055
     Dates: start: 20170321
  5. MUCINEX [Concomitant]
     Active Substance: GUAIFENESIN
     Indication: ASTHMA
  6. CLARITIN [Concomitant]
     Active Substance: LORATADINE
     Indication: CHRONIC OBSTRUCTIVE PULMONARY DISEASE
     Dosage: DAILY
  7. PRO HFA [Concomitant]
     Indication: RESPIRATORY DISORDER
     Dosage: AS REQUIRED
  8. SYMBICORT [Suspect]
     Active Substance: BUDESONIDE\FORMOTEROL FUMARATE DIHYDRATE
     Indication: ASTHMA
     Dosage: TWO INHALATIONS IN THE MORNING
     Route: 055
     Dates: end: 201703
  9. BREO ELLIPTA [Concomitant]
     Active Substance: FLUTICASONE FUROATE\VILANTEROL TRIFENATATE
     Indication: ASTHMA
     Dosage: DAILY
     Route: 055
     Dates: start: 201703
  10. BABY ASA [Concomitant]
     Active Substance: ASPIRIN
     Dosage: DAILY
  11. SYMBICORT [Suspect]
     Active Substance: BUDESONIDE\FORMOTEROL FUMARATE DIHYDRATE
     Indication: ASTHMA
     Dosage: 160/4.5 MCG, TWO INHALATIONS TWICE A DAY
     Route: 055
     Dates: start: 2007, end: 2017
  12. SYMBICORT [Suspect]
     Active Substance: BUDESONIDE\FORMOTEROL FUMARATE DIHYDRATE
     Indication: CHRONIC OBSTRUCTIVE PULMONARY DISEASE
     Dosage: 160/4.5 MCG, TWO INHALATIONS TWICE A DAY
     Route: 055
     Dates: start: 2007, end: 2017
  13. SYMBICORT [Suspect]
     Active Substance: BUDESONIDE\FORMOTEROL FUMARATE DIHYDRATE
     Indication: ASTHMA
     Dosage: 2 PUFFS, TWO INHALATIONS TWICE A DAY
     Route: 055
     Dates: start: 20170321
  14. BREO ELLIPTA [Concomitant]
     Active Substance: FLUTICASONE FUROATE\VILANTEROL TRIFENATATE
     Indication: CHRONIC OBSTRUCTIVE PULMONARY DISEASE
     Dosage: DAILY
     Route: 055
     Dates: start: 201703
  15. INCRUSE ELLIPTA [Concomitant]
     Active Substance: UMECLIDINIUM BROMIDE
     Indication: ASTHMA
     Dosage: DAILY
     Route: 055
     Dates: start: 20170104
  16. CLARITIN [Concomitant]
     Active Substance: LORATADINE
     Indication: ASTHMA
     Dosage: DAILY

REACTIONS (4)
  - Dyspnoea [Unknown]
  - Lung neoplasm [Recovered/Resolved]
  - Cough [Unknown]
  - Intentional product misuse [Unknown]

NARRATIVE: CASE EVENT DATE: 201703
